FAERS Safety Report 5006913-4 (Version None)
Quarter: 2006Q2

REPORT INFORMATION
  Report Type: 
  Country: None (occurrence: None)
  Receive Date: 20060517
  Receipt Date: 20060502
  Transmission Date: 20061013
  Serious: No
  Sender: FDA-Public Use
  Company Number: 02100-EUR-06-0024

PATIENT
  Age: 76 Year
  Sex: Male

DRUGS (7)
  1. CILOSTAZOL [Suspect]
     Dosage: ORAL
     Route: 048
     Dates: start: 20060214, end: 20060424
  2. ACETYLSALICYLIC ACID SRT [Concomitant]
  3. ACETAMINOPHEN W/ CODEINE [Concomitant]
  4. LOPERAMIDE [Concomitant]
  5. SIMVASTATIN [Concomitant]
  6. ALSUZOSIN [Concomitant]
  7. SILDENAFIL CITRATE [Concomitant]

REACTIONS (3)
  - MOUTH HAEMORRHAGE [None]
  - RECTAL HAEMORRHAGE [None]
  - URETHRAL HAEMORRHAGE [None]
